FAERS Safety Report 15541284 (Version 1)
Quarter: 2018Q4

REPORT INFORMATION
  Report Type: Spontaneous
  Country: FR (occurrence: FR)
  Receive Date: 20181023
  Receipt Date: 20181023
  Transmission Date: 20190205
  Serious: Yes (Hospitalization, Other)
  Sender: FDA-Public Use
  Company Number: FR-SA-2018SA117639

PATIENT
  Age: 10 Year
  Sex: Male
  Weight: 25 kg

DRUGS (16)
  1. PHYTOMENADIONE [Suspect]
     Active Substance: PHYTONADIONE
     Indication: PARENTERAL NUTRITION
     Dosage: 1.1 ML,QD
     Route: 042
     Dates: start: 201803
  2. CALCIUM GLUCONATE. [Suspect]
     Active Substance: CALCIUM GLUCONATE
     Indication: PARENTERAL NUTRITION
     Dosage: 24 ML,QD
     Route: 042
     Dates: start: 201803
  3. PHOCYTAN [Suspect]
     Active Substance: .ALPHA.-GLUCOSE-1-PHOSPHATE
     Indication: PARENTERAL NUTRITION
     Dosage: 16 ML,QD
     Route: 041
     Dates: start: 201803
  4. SOLUVIT [ASCORBIC ACID;BIOTIN;CALCIUM PANTOTHENATE;CYANOCOBALAMIN;FOLI [Suspect]
     Active Substance: VITAMINS
     Indication: PARENTERAL NUTRITION
     Dosage: 11 ML,QD
     Route: 042
     Dates: start: 201803
  5. VITALIPIDE ENFANTS [Suspect]
     Active Substance: .ALPHA.-TOCOPHEROL, DL-\ERGOCALCIFEROL\PHYTONADIONE\VITAMIN A PALMITATE
     Indication: PARENTERAL NUTRITION
     Dosage: 16 ML,QD
     Route: 042
     Dates: start: 201803
  6. GLUCOSE [Suspect]
     Active Substance: DEXTROSE
     Indication: PARENTERAL NUTRITION
     Dosage: 599 ML,QD
     Route: 042
     Dates: start: 201803
  7. MAGNESIUM CHLORIDE. [Suspect]
     Active Substance: MAGNESIUM CHLORIDE
     Indication: PRODUCT USED FOR UNKNOWN INDICATION
     Dosage: 6.6 ML,QW
     Route: 042
     Dates: start: 201803
  8. PHOCYTAN [Suspect]
     Active Substance: .ALPHA.-GLUCOSE-1-PHOSPHATE
     Dosage: 16 ML,QD
     Route: 041
     Dates: start: 201803
  9. RANITIDINE. [Suspect]
     Active Substance: RANITIDINE
     Indication: PARENTERAL NUTRITION
     Dosage: 1.1 ML,QD
     Route: 042
     Dates: start: 201803
  10. SODIUM CHLORIDE. [Suspect]
     Active Substance: SODIUM CHLORIDE
     Indication: PARENTERAL NUTRITION
     Dosage: 20 ML,QD
     Route: 042
     Dates: start: 201803
  11. POTASSIUM CHLORIDE. [Suspect]
     Active Substance: POTASSIUM CHLORIDE
     Indication: PARENTERAL NUTRITION
     Dosage: 36 ML,QD
     Route: 042
     Dates: start: 201803
  12. AMINO ACIDS NOS/MINERALS NOS/RIBOFLAVIN [Suspect]
     Active Substance: AMINO ACIDS\MINERALS\VITAMINS
     Indication: PARENTERAL NUTRITION
     Dosage: 393 ML,QD
     Route: 041
     Dates: start: 201803
  13. SMOFLIPID [Suspect]
     Active Substance: FISH OIL\MEDIUM-CHAIN TRIGLYCERIDES\OLIVE OIL\SOYBEAN OIL
     Indication: PARENTERAL NUTRITION
     Dosage: 230 ML,QD
     Route: 042
     Dates: start: 201803
  14. SELENIUM SULFIDE. [Suspect]
     Active Substance: SELENIUM SULFIDE
     Indication: PARENTERAL NUTRITION
     Dosage: 11 ML,QD
     Route: 042
     Dates: start: 201803
  15. NUTRYELT [Suspect]
     Active Substance: IRON\MINERALS\POTASSIUM IOD\SODIUM FLUORIDE\SODIUM MOLYBDATE\SODIUM SELENITE\ZINC
     Indication: PARENTERAL NUTRITION
     Dosage: UNK UNK,UNK
     Route: 041
  16. HUMIRA [Concomitant]
     Active Substance: ADALIMUMAB
     Indication: PRODUCT USED FOR UNKNOWN INDICATION

REACTIONS (4)
  - Lactobacillus infection [Recovering/Resolving]
  - Bacterial sepsis [Recovering/Resolving]
  - Device related infection [Recovering/Resolving]
  - Lactobacillus test positive [Unknown]

NARRATIVE: CASE EVENT DATE: 20180401
